FAERS Safety Report 15603776 (Version 1)
Quarter: 2018Q4

REPORT INFORMATION
  Report Type: Spontaneous
  Country: US (occurrence: US)
  Receive Date: 20181109
  Receipt Date: 20181109
  Transmission Date: 20190205
  Serious: No
  Sender: FDA-Public Use
  Company Number: US-AKRON, INC.-2058676

PATIENT
  Age: 58 Year
  Sex: Female

DRUGS (1)
  1. PROMETHAZINE HCL ORAL SOLUTION, USP [Suspect]
     Active Substance: PROMETHAZINE HYDROCHLORIDE

REACTIONS (1)
  - Hypersensitivity [Unknown]
